FAERS Safety Report 5382785-3 (Version None)
Quarter: 2007Q3

REPORT INFORMATION
  Report Type: 
  Country: None (occurrence: None)
  Receive Date: 20070705
  Receipt Date: 20070618
  Transmission Date: 20080115
  Serious: Yes (Congenital Anomaly)
  Sender: FDA-Public Use
  Company Number: 8019233

PATIENT
  Sex: Female
  Weight: 2.6 kg

DRUGS (9)
  1. KEPPRA [Suspect]
     Dosage: 2000 MG 2/D TRP
     Route: 064
     Dates: start: 20060301, end: 20061124
  2. PRENATAL VITAMINS [Concomitant]
  3. FOLIC ACID [Concomitant]
  4. ALBUTEROL [Concomitant]
  5. PHENYTOIN [Concomitant]
  6. VALPROATE SODIUM [Concomitant]
  7. VISTARIL /00058402/ [Concomitant]
  8. ZOLOFT [Concomitant]
  9. ZYRTEC [Concomitant]

REACTIONS (6)
  - CLEFT LIP AND PALATE [None]
  - CONGENITAL ANOMALY [None]
  - CONVULSION [None]
  - DRUG EXPOSURE DURING PREGNANCY [None]
  - MUSCULAR WEAKNESS [None]
  - PREMATURE BABY [None]
